FAERS Safety Report 5228035-X (Version None)
Quarter: 2007Q1

REPORT INFORMATION
  Report Type: 
  Country: None (occurrence: None)
  Receive Date: 20061201
  Receipt Date: 20061019
  Transmission Date: 20070707
  Serious: Yes (Other)
  Sender: FDA-Public Use
  Company Number: 2006-0010515

PATIENT
  Age: 43 Year
  Sex: Male
  Weight: 62.0521 kg

DRUGS (5)
  1. TRUVADA [Suspect]
     Indication: HIV INFECTION
     Dosage: 1 DOSAGE FORMS, 1 IN 1 D, ORAL
     Route: 048
     Dates: start: 20050401, end: 20061001
  2. REYATAZ [Concomitant]
  3. NORVIR [Concomitant]
  4. OXYCONTIN [Concomitant]
  5. LYRICA [Concomitant]

REACTIONS (1)
  - FANCONI SYNDROME ACQUIRED [None]
